FAERS Safety Report 8677177 (Version 6)
Quarter: 2012Q4

REPORT INFORMATION
  Report Type: 
  Country: US (occurrence: US)
  Receive Date: 20120723
  Receipt Date: 20121024
  Transmission Date: 20130627
  Serious: Yes (Other)
  Sender: FDA-Public Use
  Company Number: US-JNJFOC-20120707078

PATIENT
  Age: 37 Year
  Sex: Male
  Weight: 65.77 kg

DRUGS (7)
  1. VISINE ADVANCED RELIEF [Suspect]
     Indication: FOREIGN BODY SENSATION IN EYES
     Dosage: 1-2 drops in left eye
     Route: 047
     Dates: start: 20120624, end: 20120627
  2. VISINE ADVANCED RELIEF [Suspect]
     Indication: OCULAR HYPERAEMIA
     Dosage: 1-2 drops in left eye
     Route: 047
     Dates: start: 20120624, end: 20120627
  3. POLYTRIM [Suspect]
     Indication: CONJUNCTIVITIS INFECTIVE
     Dosage: 2 drops every 2-4 hours
     Route: 065
     Dates: start: 20120625, end: 20120703
  4. CRESTOR [Concomitant]
     Indication: BLOOD CHOLESTEROL
     Route: 065
  5. TRICOR [Concomitant]
     Indication: BLOOD CHOLESTEROL
     Route: 065
  6. BUPROPION [Concomitant]
     Indication: DEPRESSION
     Route: 065
  7. FISH OIL [Concomitant]
     Indication: MEDICAL DIET
     Route: 065

REACTIONS (3)
  - Eye infection fungal [Recovered/Resolved]
  - Expired drug administered [Unknown]
  - Punctate keratitis [Recovered/Resolved]
